FAERS Safety Report 23718710 (Version 1)
Quarter: 2024Q2

REPORT INFORMATION
  Report Type: Spontaneous
  Country: US (occurrence: None)
  Receive Date: 20240407
  Receipt Date: 20240407
  Transmission Date: 20240717
  Serious: No
  Sender: FDA-Public Use
  Company Number: None

PATIENT
  Age: 33 Year
  Sex: Female
  Weight: 94.5 kg

DRUGS (1)
  1. ABILIFY MAINTENA [Suspect]
     Active Substance: ARIPIPRAZOLE
     Indication: Schizophrenia
     Dosage: OTHER QUANTITY : 1 INJECTION(S);?OTHER FREQUENCY : EVERY MONTH;?
     Route: 030
     Dates: start: 20180601, end: 20231101

REACTIONS (8)
  - Weight increased [None]
  - General physical health deterioration [None]
  - Withdrawal syndrome [None]
  - Near death experience [None]
  - Illness [None]
  - Gait disturbance [None]
  - Decreased activity [None]
  - Deformity [None]

NARRATIVE: CASE EVENT DATE: 20180601
